FAERS Safety Report 9977196 (Version 1)
Quarter: 2014Q1

REPORT INFORMATION
  Report Type: Report from Study
  Country: US (occurrence: US)
  Receive Date: 20140306
  Receipt Date: 20140306
  Transmission Date: 20141002
  Serious: No
  Sender: FDA-Public Use
  Company Number: US-ABBVIE-13P-163-1167990-00

PATIENT
  Age: 17 Year
  Sex: Female

DRUGS (4)
  1. HUMIRA [Suspect]
     Indication: ARTHRITIS
     Dates: start: 201309
  2. NUVARING [Concomitant]
     Indication: CONTRACEPTION
  3. UNKNOWN MEDICATION [Concomitant]
     Indication: INSOMNIA
     Dosage: AT NIGHT
  4. STRONGER ADVIL TYPE PILL [Concomitant]
     Indication: ARTHRALGIA

REACTIONS (7)
  - Wrong technique in drug usage process [Recovered/Resolved]
  - Incorrect dose administered [Recovered/Resolved]
  - Injection site extravasation [Recovered/Resolved]
  - Injection site bruising [Recovered/Resolved]
  - Injection site erythema [Recovered/Resolved]
  - Injection site urticaria [Recovered/Resolved]
  - Injection site papule [Recovered/Resolved]
